FAERS Safety Report 22082435 (Version 1)
Quarter: 2023Q1

REPORT INFORMATION
  Report Type: Spontaneous
  Country: US (occurrence: US)
  Receive Date: 20230310
  Receipt Date: 20230310
  Transmission Date: 20230418
  Serious: Yes (Other)
  Sender: FDA-Public Use
  Company Number: US-JNJFOC-20230302486

PATIENT
  Age: 54 Year
  Sex: Female

DRUGS (7)
  1. MACITENTAN [Suspect]
     Active Substance: MACITENTAN
     Indication: Product used for unknown indication
     Route: 048
  2. TYVASO [Suspect]
     Active Substance: TREPROSTINIL
     Indication: Pulmonary hypertension
     Route: 065
  3. TYVASO [Suspect]
     Active Substance: TREPROSTINIL
     Route: 065
  4. TYVASO [Suspect]
     Active Substance: TREPROSTINIL
     Route: 065
  5. TYVASO [Suspect]
     Active Substance: TREPROSTINIL
     Dosage: 64 G (1 CARTRIDGE OF 16 G
     Route: 065
     Dates: start: 20230216
  6. TADALAFIL [Concomitant]
     Active Substance: TADALAFIL
  7. DILTIAZEM HYDROCHLORIDE [Concomitant]
     Active Substance: DILTIAZEM HYDROCHLORIDE

REACTIONS (8)
  - Vaginal haemorrhage [Unknown]
  - Cough [Unknown]
  - Headache [Recovering/Resolving]
  - Dizziness [Unknown]
  - Dyspnoea [Unknown]
  - Poor quality sleep [Unknown]
  - Malaise [Unknown]
  - Therapeutic response decreased [Unknown]
